FAERS Safety Report 4379202-9 (Version None)
Quarter: 2004Q2

REPORT INFORMATION
  Report Type: 
  Country: None (occurrence: None)
  Receive Date: 20040610
  Receipt Date: 20040528
  Transmission Date: 20050107
  Serious: Yes (Hospitalization)
  Sender: FDA-Public Use
  Company Number: US-JNJFOC-20040600771

PATIENT
  Age: 71 Year
  Sex: Female
  Weight: 45.3597 kg

DRUGS (1)
  1. DURAGESIC [Suspect]
     Indication: PAIN
     Dosage: 50 UG/HR, 1 IN 72 HOUR, TRANSDERMAL
     Route: 062
     Dates: start: 20031115

REACTIONS (1)
  - PAIN IN EXTREMITY [None]
